FAERS Safety Report 5296383-3 (Version None)
Quarter: 2007Q2

REPORT INFORMATION
  Report Type: 
  Country: None (occurrence: None)
  Receive Date: 20070413
  Receipt Date: 20070411
  Transmission Date: 20071010
  Serious: Yes (Life-Threatening, Hospitalization)
  Sender: FDA-Public Use
  Company Number: AU-BRISTOL-MYERS SQUIBB COMPANY-13743265

PATIENT
  Age: 54 Year
  Sex: Male

DRUGS (6)
  1. ERBITUX [Suspect]
     Indication: GASTROOESOPHAGEAL CANCER
     Route: 042
     Dates: start: 20070329, end: 20070329
  2. DOCETAXEL [Suspect]
     Indication: GASTROOESOPHAGEAL CANCER
     Route: 042
     Dates: start: 20070321, end: 20070321
  3. VITAMIN CAP [Concomitant]
     Indication: VITAMIN SUPPLEMENTATION
     Route: 048
     Dates: start: 20061015
  4. FEFOL [Concomitant]
     Indication: VITAMIN SUPPLEMENTATION
     Route: 048
     Dates: start: 20061015
  5. NEXIUM [Concomitant]
     Indication: GASTROOESOPHAGEAL CANCER
     Route: 048
     Dates: start: 20061229
  6. ENOXAPARIN SODIUM [Concomitant]
     Route: 058
     Dates: start: 20070201, end: 20070307

REACTIONS (2)
  - DEEP VEIN THROMBOSIS [None]
  - PULMONARY EMBOLISM [None]
